FAERS Safety Report 20771809 (Version 1)
Quarter: 2022Q2

REPORT INFORMATION
  Report Type: Spontaneous
  Country: US (occurrence: US)
  Receive Date: 20220430
  Receipt Date: 20220430
  Transmission Date: 20220721
  Serious: No
  Sender: FDA-Public Use
  Company Number: US-TEVA-2022-US-2031430

PATIENT
  Sex: Female

DRUGS (4)
  1. PRAVASTATIN [Suspect]
     Active Substance: PRAVASTATIN
  2. ZETIA [Concomitant]
     Active Substance: EZETIMIBE
     Indication: Blood cholesterol
  3. DETROL LA [Concomitant]
     Active Substance: TOLTERODINE TARTRATE
  4. ACTONEL [Concomitant]
     Active Substance: RISEDRONATE SODIUM

REACTIONS (5)
  - Arthralgia [Unknown]
  - Bone pain [Unknown]
  - Gait inability [Unknown]
  - Muscle swelling [Unknown]
  - Myalgia [Unknown]
